FAERS Safety Report 13088288 (Version 12)
Quarter: 2017Q4

REPORT INFORMATION
  Report Type: Report from Study
  Country: BR (occurrence: BR)
  Receive Date: 20170105
  Receipt Date: 20171220
  Transmission Date: 20180320
  Serious: Yes (Other)
  Sender: FDA-Public Use
  Company Number: BR-GLAXOSMITHKLINE-BR2015GSK116142

PATIENT
  Age: 35 Year
  Sex: Female
  Weight: 89 kg

DRUGS (6)
  1. BELIMUMAB [Suspect]
     Active Substance: BELIMUMAB
     Indication: SYSTEMIC LUPUS ERYTHEMATOSUS
     Dosage: UNK
     Dates: start: 20141215
  2. BELIMUMAB [Suspect]
     Active Substance: BELIMUMAB
     Dosage: 900 MG, UNK
     Dates: start: 20170928
  3. BELIMUMAB [Suspect]
     Active Substance: BELIMUMAB
     Dosage: 900 MG, UNK
     Dates: start: 20171130
  4. LEXOTAN [Concomitant]
     Active Substance: BROMAZEPAM
     Indication: PRODUCT USED FOR UNKNOWN INDICATION
     Dosage: UNK
  5. REUQUINOL [Concomitant]
     Active Substance: HYDROXYCHLOROQUINE SULFATE
     Indication: PRODUCT USED FOR UNKNOWN INDICATION
     Dosage: UNK
  6. BELIMUMAB [Suspect]
     Active Substance: BELIMUMAB
     Dosage: UNK
     Dates: start: 20170831

REACTIONS (23)
  - Systemic lupus erythematosus [Recovered/Resolved]
  - Pruritus [Recovered/Resolved]
  - Diarrhoea [Recovered/Resolved]
  - Pyrexia [Recovered/Resolved]
  - Product availability issue [Unknown]
  - Vomiting [Recovered/Resolved]
  - Swelling [Recovered/Resolved]
  - Drug dose omission [Recovered/Resolved]
  - Inappropriate schedule of drug administration [Recovered/Resolved]
  - Stomatitis [Unknown]
  - Thyroid mass [Unknown]
  - Alopecia [Recovering/Resolving]
  - Salivary gland enlargement [Unknown]
  - Skin lesion [Recovered/Resolved]
  - Ear disorder [Recovered/Resolved]
  - Overdose [Unknown]
  - Blister [Recovered/Resolved]
  - Skin disorder [Recovered/Resolved]
  - Pain [Recovered/Resolved]
  - Dizziness [Recovered/Resolved]
  - Circumstance or information capable of leading to medication error [Recovered/Resolved]
  - Influenza [Not Recovered/Not Resolved]
  - Hypotension [Recovered/Resolved]

NARRATIVE: CASE EVENT DATE: 20150913
